FAERS Safety Report 24807487 (Version 1)
Quarter: 2025Q1

REPORT INFORMATION
  Report Type: Spontaneous
  Country: ES (occurrence: ES)
  Receive Date: 20250105
  Receipt Date: 20250105
  Transmission Date: 20250408
  Serious: Yes (Hospitalization, Other)
  Sender: SANOFI AVENTIS
  Company Number: None

PATIENT
  Age: 88 Year
  Sex: Male

DRUGS (12)
  1. LEVOFLOXACIN [Suspect]
     Active Substance: LEVOFLOXACIN
     Indication: Infection
     Dosage: 500 MG, QD
     Route: 048
     Dates: start: 20240910, end: 20241011
  2. RIFAMPIN [Suspect]
     Active Substance: RIFAMPIN
     Indication: Infection
     Dosage: 300 MG, QOD
     Route: 048
     Dates: start: 20240925, end: 20241011
  3. PYRILAMINE [Concomitant]
     Active Substance: PYRILAMINE
     Dosage: 10 ML, TID (10 ML /8H)
     Route: 048
  4. DEFLAZACORT [Concomitant]
     Active Substance: DEFLAZACORT
     Dosage: 1 DF, QD
     Route: 048
  5. DEXCHLORPHENIRAMINE [Concomitant]
     Active Substance: DEXCHLORPHENIRAMINE
     Dosage: 1 DF, QD
     Route: 048
  6. FUSIDIC ACID [Concomitant]
     Active Substance: FUSIDIC ACID
     Dosage: 1 APPLICATION/12H, BID
     Route: 061
  7. METHYLPREDNISOLONE [Concomitant]
     Active Substance: METHYLPREDNISOLONE
     Dosage: 1 APPLICATION/12H, BID
     Route: 061
  8. ASPIRIN [Concomitant]
     Active Substance: ASPIRIN
     Dosage: 1 DF, QD
     Route: 048
  9. CHOLECALCIFEROL [Concomitant]
     Active Substance: CHOLECALCIFEROL
     Route: 048
  10. DUTASTERIDE\TAMSULOSIN HYDROCHLORIDE [Concomitant]
     Active Substance: DUTASTERIDE\TAMSULOSIN HYDROCHLORIDE
     Dosage: 1 DF, QD
     Route: 048
  11. BUDESONIDE\FORMOTEROL\GLYCOPYRRONIUM [Concomitant]
     Active Substance: BUDESONIDE\FORMOTEROL\GLYCOPYRRONIUM
     Dosage: 2 DF, BID
     Route: 055
  12. OMEPRAZOLE [Concomitant]
     Active Substance: OMEPRAZOLE
     Dosage: 1 DF, QD
     Route: 048

REACTIONS (1)
  - Toxic skin eruption [Recovered/Resolved]

NARRATIVE: CASE EVENT DATE: 20241011
